FAERS Safety Report 12698763 (Version 1)
Quarter: 2016Q3

REPORT INFORMATION
  Report Type: Spontaneous
  Country: US (occurrence: US)
  Receive Date: 20160830
  Receipt Date: 20160830
  Transmission Date: 20161109
  Serious: Yes (Other)
  Sender: FDA-Public Use
  Company Number: US-PFIZER INC-2016256672

PATIENT
  Age: 50 Year
  Sex: Female

DRUGS (2)
  1. CORTISONE ACETATE. [Suspect]
     Active Substance: CORTISONE ACETATE
     Indication: PEMPHIGUS
     Dosage: 3.6 G, UNK
  2. ACTH [Suspect]
     Active Substance: CORTICOTROPIN
     Indication: PEMPHIGUS
     Dosage: 2 G, UNK

REACTIONS (4)
  - Pemphigus [Unknown]
  - Condition aggravated [Unknown]
  - Disease recurrence [Unknown]
  - Neurosis [Unknown]
